FAERS Safety Report 5251455-4 (Version None)
Quarter: 2007Q1

REPORT INFORMATION
  Report Type: 
  Country: None (occurrence: None)
  Receive Date: 20070228
  Receipt Date: 20060605
  Transmission Date: 20070707
  Serious: No
  Sender: FDA-Public Use
  Company Number: US-GLAXOSMITHKLINE-A0605216A

PATIENT
  Age: 15 Year
  Sex: Male
  Weight: 97.7 kg

DRUGS (2)
  1. LAMICTAL [Suspect]
     Indication: BIPOLAR DISORDER
     Dosage: 200MG PER DAY
     Route: 048
     Dates: start: 20051101, end: 20060511
  2. SEROQUEL [Concomitant]

REACTIONS (1)
  - RASH [None]
